FAERS Safety Report 9258554 (Version 1)
Quarter: 2013Q2

REPORT INFORMATION
  Report Type: Spontaneous
  Country: US (occurrence: US)
  Receive Date: 20130426
  Receipt Date: 20130426
  Transmission Date: 20140414
  Serious: No
  Sender: FDA-Public Use
  Company Number: US-B.I. PHARMACEUTICALS,INC./RIDGEFIELD-2013-BI-10779BP

PATIENT
  Age: 83 Year
  Sex: Female

DRUGS (1)
  1. TRADJENTA [Suspect]

REACTIONS (1)
  - Pruritus [Recovered/Resolved]
